FAERS Safety Report 16224999 (Version 2)
Quarter: 2019Q2

REPORT INFORMATION
  Report Type: Spontaneous
  Country: RU (occurrence: RU)
  Receive Date: 20190422
  Receipt Date: 20190501
  Transmission Date: 20190711
  Serious: Yes (Hospitalization, Other)
  Sender: FDA-Public Use
  Company Number: RU-PFIZER INC-2019160946

PATIENT
  Age: 33 Year
  Sex: Female

DRUGS (3)
  1. JAQINUS [Suspect]
     Active Substance: TOFACITINIB CITRATE
     Indication: COLITIS ULCERATIVE
     Dosage: 20 MG, DAILY
     Dates: start: 20181201, end: 20190111
  2. MESALAZIN [Concomitant]
     Active Substance: MESALAMINE
     Dosage: 2 G, DAILY
  3. METIPRED [METHYLPREDNISOLONE] [Concomitant]
     Dosage: 1.5 TBL; UNK

REACTIONS (4)
  - Neuropathy peripheral [Recovered/Resolved]
  - Crohn^s disease [Unknown]
  - Temporomandibular joint syndrome [Recovered/Resolved]
  - Drug ineffective [Unknown]
